FAERS Safety Report 13281284 (Version 1)
Quarter: 2017Q1

REPORT INFORMATION
  Report Type: Spontaneous
  Country: US (occurrence: US)
  Receive Date: 20170228
  Receipt Date: 20170228
  Transmission Date: 20170428
  Serious: Yes (Disabling, Other)
  Sender: FDA-Public Use
  Company Number: None

PATIENT
  Age: 53 Year
  Sex: Male
  Weight: 74.25 kg

DRUGS (1)
  1. ASTHMANEFRIN [Suspect]
     Active Substance: RACEPINEPHRINE HYDROCHLORIDE
     Indication: ASTHMA
     Dosage: QUANTITY:1 INHALATION(S);?
     Route: 055
     Dates: start: 20140101, end: 20160928

REACTIONS (2)
  - Heart rate irregular [None]
  - Hypertension [None]

NARRATIVE: CASE EVENT DATE: 20160315
